FAERS Safety Report 18300496 (Version 1)
Quarter: 2020Q3

REPORT INFORMATION
  Report Type: Spontaneous
  Country: US (occurrence: US)
  Receive Date: 20200922
  Receipt Date: 20200922
  Transmission Date: 20201103
  Serious: No
  Sender: FDA-Public Use
  Company Number: None

PATIENT
  Age: 58 Year
  Sex: Female
  Weight: 66.68 kg

DRUGS (14)
  1. ESTRADIOL. [Concomitant]
     Active Substance: ESTRADIOL
  2. THYROID 130MG [Concomitant]
  3. THYROID [Concomitant]
     Active Substance: LEVOTHYROXINE\LIOTHYRONINE
  4. PREGNENOLONE [Concomitant]
     Active Substance: PREGNENOLONE
  5. TESTOSTERONE. [Concomitant]
     Active Substance: TESTOSTERONE
  6. GLUTHOTIONE NUBOLIZER [Concomitant]
  7. VIT D [Concomitant]
     Active Substance: VITAMIN D NOS
  8. VIT B?12 [Concomitant]
  9. P5P 50 [Concomitant]
  10. DOPOFLO [Concomitant]
  11. ADRENAL TONIC [Concomitant]
  12. DHEA [Concomitant]
     Active Substance: PRASTERONE
  13. NATURE?THROID [Suspect]
     Active Substance: THYROID, PORCINE
     Indication: AUTOIMMUNE THYROIDITIS
     Route: 048
     Dates: start: 20200915, end: 20200919
  14. OPTIFERIN?C [Concomitant]

REACTIONS (13)
  - Throat tightness [None]
  - Constipation [None]
  - Impaired work ability [None]
  - Eye swelling [None]
  - Dysphonia [None]
  - Weight increased [None]
  - Fatigue [None]
  - Tension headache [None]
  - Recalled product administered [None]
  - Dizziness [None]
  - Pain [None]
  - Symptom recurrence [None]
  - Arthralgia [None]

NARRATIVE: CASE EVENT DATE: 20200916
